FAERS Safety Report 7011863-8 (Version None)
Quarter: 2010Q3

REPORT INFORMATION
  Report Type: 
  Country: None (occurrence: None)
  Receive Date: 20100924
  Receipt Date: 20100914
  Transmission Date: 20110219
  Serious: Yes (Hospitalization, Other)
  Sender: FDA-Public Use
  Company Number: US-ASTRAZENECA-2010SE44272

PATIENT
  Age: 49 Year
  Sex: Male
  Weight: 103.9 kg

DRUGS (50)
  1. TOPROL-XL [Suspect]
     Indication: BLOOD PRESSURE MANAGEMENT
     Route: 048
     Dates: start: 20071101, end: 20080201
  2. HEPARIN SODIUM [Suspect]
     Indication: PERITONEAL DIALYSIS
     Route: 033
     Dates: start: 20030101, end: 20070101
  3. HEPARIN SODIUM [Suspect]
     Indication: ACUTE MYOCARDIAL INFARCTION
     Route: 033
     Dates: start: 20030101, end: 20070101
  4. HEPARIN SODIUM [Suspect]
     Indication: CATHETERISATION CARDIAC
     Route: 033
     Dates: start: 20030101, end: 20070101
  5. HEPARIN SODIUM [Suspect]
     Indication: DEEP VEIN THROMBOSIS
     Route: 033
     Dates: start: 20030101, end: 20070101
  6. HEPARIN SODIUM [Suspect]
     Route: 033
     Dates: start: 20070101, end: 20080101
  7. HEPARIN SODIUM [Suspect]
     Route: 033
     Dates: start: 20070101, end: 20080101
  8. HEPARIN SODIUM [Suspect]
     Route: 033
     Dates: start: 20070101, end: 20080101
  9. HEPARIN SODIUM [Suspect]
     Route: 033
     Dates: start: 20070101, end: 20080101
  10. HEPARIN SODIUM [Suspect]
     Route: 033
     Dates: start: 20080201, end: 20080201
  11. HEPARIN SODIUM [Suspect]
     Route: 033
     Dates: start: 20080201, end: 20080201
  12. HEPARIN SODIUM [Suspect]
     Route: 033
     Dates: start: 20080201, end: 20080201
  13. HEPARIN SODIUM [Suspect]
     Route: 033
     Dates: start: 20080201, end: 20080201
  14. HEPARIN SODIUM [Suspect]
     Dosage: 5000 UNITS ONCE
     Route: 042
     Dates: start: 20071118, end: 20071118
  15. HEPARIN SODIUM [Suspect]
     Dosage: 5000 UNITS ONCE
     Route: 042
     Dates: start: 20071118, end: 20071118
  16. HEPARIN SODIUM [Suspect]
     Dosage: 5000 UNITS ONCE
     Route: 042
     Dates: start: 20071118, end: 20071118
  17. HEPARIN SODIUM [Suspect]
     Dosage: 5000 UNITS ONCE
     Route: 042
     Dates: start: 20071118, end: 20071118
  18. HEPARIN SODIUM [Suspect]
     Dosage: 1000 UNITS EVERY HOUR
     Route: 042
     Dates: start: 20071118, end: 20071118
  19. HEPARIN SODIUM [Suspect]
     Dosage: 1000 UNITS EVERY HOUR
     Route: 042
     Dates: start: 20071118, end: 20071118
  20. HEPARIN SODIUM [Suspect]
     Dosage: 1000 UNITS EVERY HOUR
     Route: 042
     Dates: start: 20071118, end: 20071118
  21. HEPARIN SODIUM [Suspect]
     Dosage: 1000 UNITS EVERY HOUR
     Route: 042
     Dates: start: 20071118, end: 20071118
  22. HEPARIN SODIUM [Suspect]
     Dosage: 7000 UNITS ONCE
     Route: 042
     Dates: start: 20071118, end: 20071118
  23. HEPARIN SODIUM [Suspect]
     Dosage: 7000 UNITS ONCE
     Route: 042
     Dates: start: 20071118, end: 20071118
  24. HEPARIN SODIUM [Suspect]
     Dosage: 7000 UNITS ONCE
     Route: 042
     Dates: start: 20071118, end: 20071118
  25. HEPARIN SODIUM [Suspect]
     Dosage: 7000 UNITS ONCE
     Route: 042
     Dates: start: 20071118, end: 20071118
  26. HEPARIN SODIUM [Suspect]
     Dosage: 5000 UNITS EVERY 8 HOUR
     Route: 058
     Dates: start: 20080202, end: 20080204
  27. HEPARIN SODIUM [Suspect]
     Dosage: 5000 UNITS EVERY 8 HOUR
     Route: 058
     Dates: start: 20080202, end: 20080204
  28. HEPARIN SODIUM [Suspect]
     Dosage: 5000 UNITS EVERY 8 HOUR
     Route: 058
     Dates: start: 20080202, end: 20080204
  29. HEPARIN SODIUM [Suspect]
     Dosage: 5000 UNITS EVERY 8 HOUR
     Route: 058
     Dates: start: 20080202, end: 20080204
  30. RAMIPRIL [Suspect]
     Indication: BLOOD PRESSURE MANAGEMENT
     Route: 048
     Dates: start: 20071101, end: 20080201
  31. RENAGEL [Concomitant]
  32. CALCITRIOL [Concomitant]
  33. PHOSLO [Concomitant]
  34. LIPITOR [Concomitant]
  35. PROZAC [Concomitant]
  36. SENSIPAR [Concomitant]
  37. OMEPRAZOLE [Concomitant]
  38. EPOGEN [Concomitant]
  39. MORPHINE [Concomitant]
  40. DELFLEX W/ DEXTROSE 1.5% [Concomitant]
  41. MOBIC [Concomitant]
  42. PLAVIX [Concomitant]
  43. RIFAMPICIN [Concomitant]
  44. GABAPENTIN [Concomitant]
  45. ASPIRIN [Concomitant]
  46. LISINOPRIL [Concomitant]
  47. LEXAPRO [Concomitant]
  48. IRON [Concomitant]
  49. CEFTIN [Concomitant]
  50. TRICOR [Concomitant]

REACTIONS (13)
  - ABDOMINAL DISCOMFORT [None]
  - ABDOMINAL PAIN UPPER [None]
  - ABSCESS [None]
  - DIZZINESS [None]
  - ELECTROLYTE IMBALANCE [None]
  - HYPOKALAEMIA [None]
  - HYPOTENSION [None]
  - LOSS OF CONSCIOUSNESS [None]
  - NAUSEA [None]
  - SEPTIC SHOCK [None]
  - TREMOR [None]
  - UNRESPONSIVE TO STIMULI [None]
  - VOMITING [None]
